FAERS Safety Report 15471603 (Version 1)
Quarter: 2018Q4

REPORT INFORMATION
  Report Type: Spontaneous
  Country: NL (occurrence: NL)
  Receive Date: 20181007
  Receipt Date: 20181007
  Transmission Date: 20190205
  Serious: Yes (Other)
  Sender: FDA-Public Use
  Company Number: NL-TEVA-2018-NL-961271

PATIENT
  Age: 37 Year
  Sex: Male
  Weight: 72 kg

DRUGS (3)
  1. IBUPROFEN 400MG, TABLET [Concomitant]
     Dosage: 400 MILLIGRAM DAILY;
     Route: 065
     Dates: start: 20180614
  2. ATORVASTATINE TABLET, 10 MG (MILLIGRAM) [Suspect]
     Active Substance: ATORVASTATIN
     Indication: TYPE IIA HYPERLIPIDAEMIA
     Dosage: 10 MILLIGRAM DAILY;
     Route: 065
     Dates: start: 20180614, end: 20180714
  3. TEMAZEPAM 10MG, CAPSULE [Concomitant]
     Dosage: 10 MILLIGRAM DAILY;
     Route: 065
     Dates: start: 20180614

REACTIONS (1)
  - Muscle atrophy [Not Recovered/Not Resolved]

NARRATIVE: CASE EVENT DATE: 20180621
